FAERS Safety Report 6878093-1 (Version None)
Quarter: 2010Q2

REPORT INFORMATION
  Report Type: 
  Country: None (occurrence: None)
  Receive Date: 20100616
  Receipt Date: 20100226
  Transmission Date: 20101027
  Serious: No
  Sender: FDA-Public Use
  Company Number: DSA_42710_2010

PATIENT
  Sex: Female

DRUGS (2)
  1. XENAZINE [Suspect]
     Indication: HUNTINGTON'S CHOREA
     Dosage: (12.5 MG QD ORAL), (DF ORAL)
     Route: 048
     Dates: start: 20100202, end: 20100214
  2. XENAZINE [Suspect]
     Indication: HUNTINGTON'S CHOREA
     Dosage: (12.5 MG QD ORAL), (DF ORAL)
     Route: 048
     Dates: start: 20100101

REACTIONS (4)
  - BLOOD PRESSURE INCREASED [None]
  - FEELING COLD [None]
  - HOT FLUSH [None]
  - MOVEMENT DISORDER [None]
